FAERS Safety Report 12546978 (Version 2)
Quarter: 2016Q3

REPORT INFORMATION
  Report Type: Spontaneous
  Country: US (occurrence: US)
  Receive Date: 20160711
  Receipt Date: 20160804
  Transmission Date: 20161109
  Serious: No
  Sender: FDA-Public Use
  Company Number: US-GILEAD-2016-0222658

PATIENT
  Sex: Female
  Weight: 117.46 kg

DRUGS (1)
  1. HARVONI [Suspect]
     Active Substance: LEDIPASVIR\SOFOSBUVIR
     Indication: PRODUCT USED FOR UNKNOWN INDICATION
     Dosage: UNK
     Route: 065
     Dates: end: 20150731

REACTIONS (5)
  - Treatment noncompliance [Unknown]
  - Hypoaesthesia [Unknown]
  - Cough [Recovered/Resolved]
  - Hypersensitivity [Recovered/Resolved]
  - Upper respiratory tract infection [Recovered/Resolved]
